FAERS Safety Report 9523290 (Version 1)
Quarter: 2013Q3

REPORT INFORMATION
  Report Type: Spontaneous
  Country: US (occurrence: US)
  Receive Date: 20130913
  Receipt Date: 20130913
  Transmission Date: 20140515
  Serious: No
  Sender: FDA-Public Use
  Company Number: US-009507513-1309USA003616

PATIENT
  Sex: Female
  Weight: 55.33 kg

DRUGS (9)
  1. ZEGERID OTC CAPSULES [Suspect]
     Indication: GASTROOESOPHAGEAL REFLUX DISEASE
     Dosage: 20 MG, UNKNOWN
     Route: 048
     Dates: start: 201301
  2. ZEGERID OTC CAPSULES [Suspect]
     Indication: MEDICAL OBSERVATION
  3. PRISTIQ [Concomitant]
     Indication: DEPRESSION
     Dosage: UNK, UNKNOWN
  4. CLONOPIN [Concomitant]
     Indication: DEPRESSION
     Dosage: UNK, UNKNOWN
  5. TRAZODONE HYDROCHLORIDE [Concomitant]
     Indication: DEPRESSION
     Dosage: UNK, UNKNOWN
  6. CELEBREX [Concomitant]
     Indication: FIBROMYALGIA
     Dosage: UNK, UNKNOWN
  7. CELEBREX [Concomitant]
     Indication: BACK PAIN
  8. CENTRUM SILVER [Concomitant]
     Indication: PRODUCT USED FOR UNKNOWN INDICATION
     Dosage: UNK, UNKNOWN
  9. CALTRATE (CALCIUM CARBONATE (+) CHOLECALCIFEROL) [Concomitant]
     Indication: PRODUCT USED FOR UNKNOWN INDICATION
     Dosage: UNK, UNKNOWN

REACTIONS (2)
  - Incorrect drug administration duration [Unknown]
  - Overdose [Unknown]
